FAERS Safety Report 24192918 (Version 1)
Quarter: 2024Q3

REPORT INFORMATION
  Report Type: Spontaneous
  Country: SG (occurrence: SG)
  Receive Date: 20240809
  Receipt Date: 20240809
  Transmission Date: 20241016
  Serious: Yes (Other)
  Sender: SANOFI AVENTIS
  Company Number: SG-SA-SAC20240807000104

PATIENT
  Age: 59 Year
  Sex: Male

DRUGS (1)
  1. OXALIPLATIN [Suspect]
     Active Substance: OXALIPLATIN
     Dosage: UNK
     Route: 042

REACTIONS (4)
  - Hyperhidrosis [Unknown]
  - Flushing [Unknown]
  - Wheezing [Unknown]
  - Nausea [Unknown]

NARRATIVE: CASE EVENT DATE: 20240723
